FAERS Safety Report 9642216 (Version 2)
Quarter: 2013Q4

REPORT INFORMATION
  Report Type: Spontaneous
  Country: BR (occurrence: BR)
  Receive Date: 20131024
  Receipt Date: 20131024
  Transmission Date: 20140711
  Serious: Yes (Other)
  Sender: FDA-Public Use
  Company Number: BR-PFIZER INC-2012317838

PATIENT
  Age: 66 Year
  Sex: Male
  Weight: 65 kg

DRUGS (4)
  1. SUTENT [Suspect]
     Indication: RENAL CELL CARCINOMA
     Dosage: 50 MG, ONCE DAILY, CYCLIC (4 X 2)
     Route: 048
     Dates: start: 20121122
  2. SUTENT [Suspect]
     Dosage: 50 MG, ONCE DAILY, CYCLIC (4 X 2)
     Route: 048
     Dates: start: 201308, end: 2013
  3. NOVALGINA [Concomitant]
  4. LEVOID [Concomitant]

REACTIONS (21)
  - Rectal haemorrhage [Unknown]
  - Spinal disorder [Unknown]
  - Hiccups [Unknown]
  - Dyspnoea [Unknown]
  - Renal pain [Unknown]
  - Ageusia [Unknown]
  - Diarrhoea [Unknown]
  - Decreased appetite [Unknown]
  - Oral pain [Unknown]
  - Mouth injury [Unknown]
  - Cough [Unknown]
  - Nasopharyngitis [Unknown]
  - Oral pain [Unknown]
  - Aphthous stomatitis [Unknown]
  - Hypersomnia [Unknown]
  - Weight decreased [Unknown]
  - Nervousness [Not Recovered/Not Resolved]
  - Depression [Not Recovered/Not Resolved]
  - Infrequent bowel movements [Not Recovered/Not Resolved]
  - Chromaturia [Not Recovered/Not Resolved]
  - Blood urine present [Not Recovered/Not Resolved]
